FAERS Safety Report 10362973 (Version 1)
Quarter: 2014Q3

REPORT INFORMATION
  Report Type: Spontaneous
  Country: DE (occurrence: DE)
  Receive Date: 20140805
  Receipt Date: 20140805
  Transmission Date: 20150326
  Serious: Yes (Other)
  Sender: FDA-Public Use
  Company Number: DE-ACTAVIS-2014-16748

PATIENT
  Age: 67 Year
  Sex: Male
  Weight: 95 kg

DRUGS (6)
  1. IRBESARTAN AND HIDROCLOROTIAZIDA [Concomitant]
     Indication: HYPERTENSION
     Dosage: 325 MG, DAILY
     Route: 065
  2. ACETYLSALICYLIC ACID [Concomitant]
     Active Substance: ASPIRIN
     Indication: PRODUCT USED FOR UNKNOWN INDICATION
     Dosage: 100 MG, QAM
     Route: 065
  3. CARBOPLATIN (UNKNOWN) [Interacting]
     Active Substance: CARBOPLATIN
     Indication: SARCOMA
     Dosage: UNK
     Route: 065
  4. DOXORUBICIN (UNKNOWN) [Suspect]
     Active Substance: DOXORUBICIN
     Indication: SARCOMA
     Dosage: 60 MG/M2, CYCLICAL,DAY 1
     Route: 065
  5. IFOSFAMIDE. [Suspect]
     Active Substance: IFOSFAMIDE
     Indication: SARCOMA
     Dosage: 3 G/M^2,CYCLIC,DAY 1-3
     Route: 065
  6. ATORVASTATIN [Concomitant]
     Active Substance: ATORVASTATIN
     Indication: HYPERCHOLESTEROLAEMIA
     Dosage: 20 MG, QAM
     Route: 065

REACTIONS (11)
  - Aplasia [Unknown]
  - Nephropathy toxic [None]
  - Renal tubular disorder [None]
  - Upper respiratory tract infection [None]
  - Haemodialysis [None]
  - Renal tubular atrophy [None]
  - Kidney fibrosis [None]
  - Renal failure [Not Recovered/Not Resolved]
  - Glomerulonephritis [None]
  - Diverticulum intestinal [None]
  - Renal arteriosclerosis [None]
